FAERS Safety Report 5881102-X (Version None)
Quarter: 2008Q3

REPORT INFORMATION
  Report Type: 
  Country: None (occurrence: None)
  Receive Date: 20080912
  Receipt Date: 20080618
  Transmission Date: 20090109
  Serious: No
  Sender: FDA-Public Use
  Company Number: US-ABBOTT-08P-163-0458578-00

PATIENT
  Sex: Female
  Weight: 39.952 kg

DRUGS (10)
  1. HUMIRA [Suspect]
     Indication: CROHN'S DISEASE
     Route: 058
     Dates: start: 20080401
  2. HUMIRA [Suspect]
     Route: 058
  3. MERCAPTOPURINE [Concomitant]
     Indication: CROHN'S DISEASE
     Route: 048
     Dates: start: 20080101
  4. MERCAPTOPURINE [Concomitant]
     Route: 048
     Dates: start: 20050101, end: 20070101
  5. CYPROHEPTADINE HYDROCHLORIDE [Concomitant]
     Indication: FISTULA
     Route: 048
     Dates: start: 20080401
  6. METRONIDAZOLE [Concomitant]
     Indication: FISTULA
     Route: 048
     Dates: start: 20080101
  7. FEXOFENADINE [Concomitant]
     Indication: SEASONAL ALLERGY
     Route: 048
     Dates: start: 20050101
  8. MACROGOL [Concomitant]
     Indication: CONSTIPATION
     Route: 048
     Dates: start: 20000101
  9. MACROGOL [Concomitant]
     Indication: CROHN'S DISEASE
  10. PROBIOTICS [Concomitant]
     Indication: CROHN'S DISEASE
     Route: 048
     Dates: start: 20040101

REACTIONS (1)
  - INJECTION SITE PAIN [None]
